FAERS Safety Report 9156600 (Version 1)
Quarter: 2013Q1

REPORT INFORMATION
  Report Type: Spontaneous
  Country: US (occurrence: None)
  Receive Date: 20130308
  Receipt Date: 20130308
  Transmission Date: 20140127
  Serious: Yes (Hospitalization)
  Sender: FDA-Public Use
  Company Number: None

PATIENT
  Sex: Female
  Weight: 65.7 kg

DRUGS (1)
  1. ALFA 2 INTERFERON 2B (INTRON-A) [Suspect]
     Dosage: 570 MU
     Dates: end: 20130201

REACTIONS (7)
  - Neutrophil count decreased [None]
  - White blood cell count decreased [None]
  - Insomnia [None]
  - Decreased appetite [None]
  - Dysgeusia [None]
  - Fatigue [None]
  - Headache [None]
